FAERS Safety Report 11142299 (Version 1)
Quarter: 2015Q2

REPORT INFORMATION
  Report Type: Spontaneous
  Country: FR (occurrence: FR)
  Receive Date: 20150527
  Receipt Date: 20150527
  Transmission Date: 20150821
  Serious: Yes (Hospitalization, Other)
  Sender: FDA-Public Use
  Company Number: FR-PFIZER INC-2015174274

PATIENT
  Age: 81 Year
  Sex: Female

DRUGS (10)
  1. HYDROSOL POLYVITAMINE [Concomitant]
  2. RISPERIDONE. [Suspect]
     Active Substance: RISPERIDONE
     Dosage: 0.5 UNK, UNK
     Dates: start: 20150417
  3. METEOXANE [Concomitant]
     Active Substance: AMOBARBITAL\BELLADONNA LEAF\DIMETHICONE\ERGOTAMINE TARTRATE
  4. ATARAX [Concomitant]
     Active Substance: HYDROXYZINE\HYDROXYZINE HYDROCHLORIDE
     Dosage: 50 MG, 3X/DAY
     Dates: start: 20150408, end: 20150417
  5. EFFEXOR [Suspect]
     Active Substance: VENLAFAXINE HYDROCHLORIDE
     Dosage: 75 MG, DAILY
     Route: 048
     Dates: start: 20150324, end: 20150417
  6. ZOCOR [Concomitant]
     Active Substance: SIMVASTATIN
  7. ESBERIVEN [Concomitant]
     Active Substance: TROXERUTIN
  8. RISPERIDONE. [Suspect]
     Active Substance: RISPERIDONE
     Dosage: 1 MG, UNK
     Route: 048
     Dates: start: 20150403, end: 20150416
  9. ATENOLOL. [Concomitant]
     Active Substance: ATENOLOL
  10. OGAST [Concomitant]
     Active Substance: LANSOPRAZOLE

REACTIONS (5)
  - Hallucination [Recovered/Resolved]
  - Nightmare [Unknown]
  - Atrial fibrillation [Unknown]
  - Altered state of consciousness [Unknown]
  - Cerebral hypoperfusion [Unknown]

NARRATIVE: CASE EVENT DATE: 201504
